FAERS Safety Report 25321099 (Version 4)
Quarter: 2025Q3

REPORT INFORMATION
  Report Type: Spontaneous
  Country: US (occurrence: US)
  Receive Date: 20250515
  Receipt Date: 20250811
  Transmission Date: 20251021
  Serious: Yes (Other)
  Sender: BRISTOL-MYERS SQUIBB COMPANY
  Company Number: US-BRISTOL-MYERS SQUIBB COMPANY-2025-066047

PATIENT
  Age: 79 Year
  Sex: Male

DRUGS (2)
  1. POMALYST [Suspect]
     Active Substance: POMALIDOMIDE
     Indication: Plasma cell myeloma
     Dosage: FREQUENCY: QD (21 DAYS ON 7 DAYS OFF CYCLE)
     Route: 048
  2. POMALYST [Suspect]
     Active Substance: POMALIDOMIDE
     Indication: Chemotherapy
     Dosage: QD (21 DAYS ON, 7 DAYS OFF)
     Route: 048

REACTIONS (3)
  - Lip squamous cell carcinoma [Recovered/Resolved]
  - Mass [Unknown]
  - Squamous cell carcinoma [Unknown]
